FAERS Safety Report 11310721 (Version 3)
Quarter: 2015Q4

REPORT INFORMATION
  Report Type: Spontaneous
  Country: US (occurrence: US)
  Receive Date: 20150725
  Receipt Date: 20151125
  Transmission Date: 20160304
  Serious: No
  Sender: FDA-Public Use
  Company Number: US-009507513-1507USA006564

PATIENT
  Sex: Female

DRUGS (1)
  1. FOSAMAX [Suspect]
     Active Substance: ALENDRONATE SODIUM
     Indication: OSTEOGENESIS IMPERFECTA
     Dosage: 70 MG, QW
     Route: 048
     Dates: start: 2010

REACTIONS (3)
  - Weight decreased [Recovering/Resolving]
  - Dysphagia [Not Recovered/Not Resolved]
  - Expired product administered [Unknown]
